FAERS Safety Report 4816976-4 (Version None)
Quarter: 2005Q4

REPORT INFORMATION
  Report Type: 
  Country: None (occurrence: None)
  Receive Date: 20051031
  Receipt Date: 20051031
  Transmission Date: 20060501
  Serious: Yes (Other)
  Sender: FDA-Public Use
  Company Number: None

PATIENT
  Age: 77 Year
  Sex: Female

DRUGS (7)
  1. COUMADIN [Suspect]
     Indication: ATRIAL FIBRILLATION
     Dosage: 6 MG QD
     Dates: start: 19900101
  2. LASIX [Suspect]
     Indication: CARDIAC FAILURE CONGESTIVE
     Dosage: 120 MG QD
     Dates: start: 19930101
  3. LASIX [Suspect]
     Indication: CARDIOMYOPATHY
     Dosage: 120 MG QD
     Dates: start: 19930101
  4. ENALAPRIL MALEATE [Concomitant]
  5. PREVACID [Concomitant]
  6. DIGOXIN [Concomitant]
  7. ASPIRIN [Concomitant]

REACTIONS (3)
  - INTERNATIONAL NORMALISED RATIO ABNORMAL [None]
  - THERAPEUTIC RESPONSE UNEXPECTED WITH DRUG SUBSTITUTION [None]
  - WEIGHT INCREASED [None]
